FAERS Safety Report 9976176 (Version 1)
Quarter: 2014Q1

REPORT INFORMATION
  Report Type: Report from Study
  Country: US (occurrence: US)
  Receive Date: 20140306
  Receipt Date: 20140306
  Transmission Date: 20141002
  Serious: No
  Sender: FDA-Public Use
  Company Number: US-ABBVIE-13P-163-1167265-00

PATIENT
  Age: 44 Year
  Sex: Female

DRUGS (7)
  1. HUMIRA [Suspect]
     Indication: PSORIATIC ARTHROPATHY
     Dates: start: 20130718
  2. ZONISAMIDE [Concomitant]
     Indication: MIGRAINE PROPHYLAXIS
     Dosage: AT BETDIME
  3. TRAMADOL [Concomitant]
     Indication: PAIN
     Dosage: 1 OR 2 AT BEDTIME
  4. ALPRAZOLAM [Concomitant]
     Indication: MIGRAINE PROPHYLAXIS
     Dosage: 1/2 DAILY
  5. ALBUTEROL [Concomitant]
     Indication: ASTHMA
     Dosage: INHALER
  6. MVI [Concomitant]
     Indication: PRODUCT USED FOR UNKNOWN INDICATION
     Dosage: DAILY
  7. GABAPENTIN [Concomitant]
     Indication: PAIN
     Dosage: PATCH (TO CHANGE ONCE A WEEK)

REACTIONS (5)
  - Eye irritation [Recovering/Resolving]
  - Colitis [Recovered/Resolved]
  - Vision blurred [Recovering/Resolving]
  - Cough [Recovering/Resolving]
  - Respiratory tract congestion [Recovering/Resolving]
